FAERS Safety Report 6134351-X (Version None)
Quarter: 2009Q1

REPORT INFORMATION
  Report Type: 
  Country: None (occurrence: None)
  Receive Date: 20090327
  Receipt Date: 20090326
  Transmission Date: 20090719
  Serious: Yes (Death, Hospitalization)
  Sender: FDA-Public Use
  Company Number: PHHY2009AU09556

PATIENT
  Sex: Male

DRUGS (2)
  1. CLOZARIL [Suspect]
     Dosage: 550 MG/DAY
     Dates: start: 20010130
  2. CLOZAPINE [Suspect]
     Dosage: 550 MG/DAY

REACTIONS (3)
  - ANKLE FRACTURE [None]
  - DEATH [None]
  - SURGERY [None]
